FAERS Safety Report 15918833 (Version 1)
Quarter: 2019Q1

REPORT INFORMATION
  Report Type: Report from Study
  Country: IT (occurrence: IT)
  Receive Date: 20190205
  Receipt Date: 20190205
  Transmission Date: 20190417
  Serious: Yes (Hospitalization, Other)
  Sender: FDA-Public Use
  Company Number: IT-MYLANLABS-2019M1009275

PATIENT
  Age: 41 Year
  Sex: Male

DRUGS (1)
  1. ALPRAZOLAM. [Suspect]
     Active Substance: ALPRAZOLAM
     Indication: PRODUCT USED FOR UNKNOWN INDICATION
     Dosage: 70 GTT DROPS, TOTAL
     Route: 048
     Dates: start: 20180626, end: 20180626

REACTIONS (4)
  - Hypotension [Recovering/Resolving]
  - Sopor [Recovering/Resolving]
  - Hypokalaemia [Recovering/Resolving]
  - Drug abuse [Unknown]

NARRATIVE: CASE EVENT DATE: 20180626
